FAERS Safety Report 7359813-9 (Version None)
Quarter: 2011Q1

REPORT INFORMATION
  Report Type: 
  Country: None (occurrence: None)
  Receive Date: 20110317
  Receipt Date: 20110311
  Transmission Date: 20110831
  Serious: Yes (Death, Other)
  Sender: FDA-Public Use
  Company Number: US-ROCHE-748765

PATIENT
  Age: 58 Year
  Sex: Female
  Weight: 64.5 kg

DRUGS (6)
  1. FILGRASTIM [Suspect]
     Indication: BREAST CANCER
     Dosage: DOSE: 5 MCG/KG ON DAYS 2 TO 11
     Route: 058
     Dates: start: 20100902, end: 20100902
  2. BEVACIZUMAB [Suspect]
     Indication: BREAST CANCER
     Dosage: FREQUENCY: OVER 30-90 MIN ON DAY 1, DATE OF LAST DOSE PRIOR TO SAE: 29 SEPTEMBER 2010
     Route: 042
     Dates: start: 20100526, end: 20100929
  3. DOXORUBICIN [Suspect]
     Indication: BREAST CANCER
     Dosage: ROUTE: IVP ON DAY 1, CYCLE: 14 DAYS (CYCLE 1 TO 4)
     Route: 042
     Dates: start: 20100526, end: 20100707
  4. CYCLOPHOSPHAMIDE [Suspect]
     Indication: BREAST CANCER
     Dosage: OVER 30-90 MIN ON DAY 1
     Route: 042
     Dates: start: 20100526, end: 20100707
  5. PEGFILGRASTIM [Suspect]
     Indication: BREAST CANCER
     Dosage: ON DAY 2
     Route: 058
     Dates: start: 20100526, end: 20100708
  6. PACLITAXEL [Suspect]
     Indication: BREAST CANCER
     Dosage: CYCLE: 21 DAYS (CYCLE 5 TO 8) IV OVER 1 HOUR ON DAY 1,8,15
     Route: 042
     Dates: start: 20100526, end: 20100929

REACTIONS (3)
  - CARDIAC ARREST [None]
  - LEFT VENTRICULAR DYSFUNCTION [None]
  - SHOCK [None]
